FAERS Safety Report 5989357-8 (Version None)
Quarter: 2008Q4

REPORT INFORMATION
  Report Type: 
  Country: None (occurrence: None)
  Receive Date: 20081210
  Receipt Date: 20081128
  Transmission Date: 20090506
  Serious: Yes (Other)
  Sender: FDA-Public Use
  Company Number: CA-SANOFI-SYNTHELABO-A01200815584

PATIENT
  Age: 67 Year
  Sex: Female

DRUGS (8)
  1. DECADRON [Concomitant]
     Indication: PREMEDICATION
     Dosage: UNK
     Route: 048
     Dates: start: 20071029
  2. ZOFRAN [Concomitant]
     Indication: PREMEDICATION
     Dosage: UNK
     Route: 048
     Dates: start: 20071029
  3. FLUOROURACIL [Concomitant]
     Indication: COLON CANCER
     Dosage: 670 MG
     Route: 041
     Dates: start: 20071029
  4. LEUCOVORIN CALCIUM [Concomitant]
     Indication: COLON CANCER
     Dosage: 670 MG
     Route: 041
     Dates: start: 20071029
  5. TYLENOL (CAPLET) [Concomitant]
     Dosage: UNK
     Route: 048
  6. REACTINE [Concomitant]
     Indication: URTICARIA
     Dosage: UNK
     Route: 048
  7. CLARITIN [Concomitant]
     Indication: URTICARIA
     Dosage: UNK
     Route: 048
  8. ELOXATIN [Suspect]
     Indication: COLON CANCER
     Dosage: 142 MG
     Route: 041
     Dates: start: 20080407, end: 20080407

REACTIONS (3)
  - HYPOTENSION [None]
  - LOSS OF CONSCIOUSNESS [None]
  - SHOCK [None]
